FAERS Safety Report 4750037-8 (Version None)
Quarter: 2005Q3

REPORT INFORMATION
  Report Type: 
  Country: None (occurrence: None)
  Receive Date: 20050822
  Receipt Date: 20050803
  Transmission Date: 20060218
  Serious: Yes (Hospitalization)
  Sender: FDA-Public Use
  Company Number: 200510083BSV

PATIENT
  Age: 72 Year
  Sex: Male

DRUGS (4)
  1. CIPROFLOXACIN [Suspect]
     Indication: INTERVERTEBRAL DISCITIS
     Dates: start: 20050101
  2. ZYVOX [Suspect]
     Indication: INTERVERTEBRAL DISCITIS
     Dosage: 600 MG, BID, ORAL
     Route: 048
     Dates: start: 20050427, end: 20050621
  3. TRIATEC [Concomitant]
  4. ATACAND [Concomitant]

REACTIONS (3)
  - APLASTIC ANAEMIA [None]
  - BLOOD PRESSURE DECREASED [None]
  - PANCYTOPENIA [None]
